FAERS Safety Report 7287890-2 (Version None)
Quarter: 2011Q1

REPORT INFORMATION
  Report Type: 
  Country: None (occurrence: None)
  Receive Date: 20110211
  Receipt Date: 20101230
  Transmission Date: 20110831
  Serious: No
  Sender: FDA-Public Use
  Company Number: A0902066A

PATIENT
  Age: 48 Year
  Sex: Female

DRUGS (3)
  1. PROZAC [Concomitant]
  2. TOPAMAX [Concomitant]
  3. TREXIMET [Suspect]
     Indication: MIGRAINE
     Dosage: 1TAB AS REQUIRED
     Route: 048
     Dates: start: 20101118, end: 20101118

REACTIONS (4)
  - HYPERSENSITIVITY [None]
  - PRURITUS GENERALISED [None]
  - RASH PAPULAR [None]
  - BURNING SENSATION [None]
